FAERS Safety Report 18814705 (Version 1)
Quarter: 2021Q1

REPORT INFORMATION
  Report Type: Spontaneous
  Country: US (occurrence: US)
  Receive Date: 20210129
  Receipt Date: 20210129
  Transmission Date: 20210419
  Serious: Yes (Hospitalization)
  Sender: FDA-Public Use
  Company Number: None

PATIENT
  Age: 86 Year
  Sex: Female

DRUGS (1)
  1. DOFETILIDE 125 UGM [Suspect]
     Active Substance: DOFETILIDE
     Indication: ATRIAL FIBRILLATION
     Dosage: ?          OTHER DOSE:125 UGM ;?
     Route: 048
     Dates: start: 20201106

REACTIONS (2)
  - Stent placement [None]
  - Therapy cessation [None]

NARRATIVE: CASE EVENT DATE: 202011
